FAERS Safety Report 8930181 (Version 21)
Quarter: 2013Q3

REPORT INFORMATION
  Report Type: Report from Study
  Country: CA (occurrence: CA)
  Receive Date: 20121128
  Receipt Date: 20130709
  Transmission Date: 20140515
  Serious: Yes (Hospitalization, Other)
  Sender: FDA-Public Use
  Company Number: CA-ROCHE-1160806

PATIENT
  Age: 51 Year
  Sex: Male
  Weight: 101.8 kg

DRUGS (4)
  1. AVASTIN [Suspect]
     Indication: GLIOBLASTOMA
     Route: 042
     Dates: start: 20121029, end: 20130605
  2. AVASTIN [Suspect]
     Route: 042
     Dates: start: 20121224
  3. AVASTIN [Suspect]
     Route: 042
     Dates: start: 20130220
  4. DECADRON [Concomitant]
     Route: 065
     Dates: start: 20130228

REACTIONS (15)
  - Cholecystitis acute [Recovered/Resolved]
  - Thyroid disorder [Unknown]
  - Blood pressure increased [Not Recovered/Not Resolved]
  - Neoplasm [Unknown]
  - Headache [Not Recovered/Not Resolved]
  - Deep vein thrombosis [Not Recovered/Not Resolved]
  - Disease progression [Not Recovered/Not Resolved]
  - Weight decreased [Recovering/Resolving]
  - Heart rate increased [Not Recovered/Not Resolved]
  - Muscle spasms [Not Recovered/Not Resolved]
  - Muscle spasms [Not Recovered/Not Resolved]
  - Platelet count decreased [Unknown]
  - Nausea [Not Recovered/Not Resolved]
  - Somnolence [Not Recovered/Not Resolved]
  - Abdominal pain [Not Recovered/Not Resolved]
